FAERS Safety Report 4818117-6 (Version None)
Quarter: 2005Q4

REPORT INFORMATION
  Report Type: 
  Country: None (occurrence: None)
  Receive Date: 20051101
  Receipt Date: 20051101
  Transmission Date: 20060501
  Serious: No
  Sender: FDA-Public Use
  Company Number: None

PATIENT
  Age: 58 Year
  Sex: Female
  Weight: 59.8748 kg

DRUGS (5)
  1. ESOMEPRAZOLE - GENERIC [Suspect]
     Indication: GASTROOESOPHAGEAL REFLUX DISEASE
     Dosage: 1 TABLET 1 X DAY BY MOUTH
     Route: 048
     Dates: start: 20050301
  2. ESOMEPRAZOLE - GENERIC [Suspect]
     Indication: GASTROOESOPHAGEAL REFLUX DISEASE
     Dosage: 1 TABLET 1 X DAY BY MOUTH
     Route: 048
     Dates: start: 20050801
  3. PRILOSEC OTC [Suspect]
  4. NEXIUM [Suspect]
  5. NEXIUM [Suspect]

REACTIONS (1)
  - DEPRESSION [None]
